FAERS Safety Report 10365882 (Version 1)
Quarter: 2014Q3

REPORT INFORMATION
  Report Type: Spontaneous
  Country: GB (occurrence: None)
  Receive Date: 20140804
  Receipt Date: 20140804
  Transmission Date: 20150326
  Serious: Yes (Hospitalization)
  Sender: FDA-Public Use
  Company Number: GB2014K3034SPO

PATIENT
  Age: 73 Year
  Sex: Female

DRUGS (3)
  1. WARFARIN (WARFARIN) [Concomitant]
     Active Substance: WARFARIN
  2. LANSOPRAZOLE. [Suspect]
     Active Substance: LANSOPRAZOLE
     Indication: ABDOMINAL PAIN UPPER
     Route: 048
     Dates: start: 20140709, end: 20140717
  3. CYCLIZINE [Concomitant]
     Active Substance: CYCLIZINE

REACTIONS (4)
  - Abdominal pain upper [None]
  - Dilatation intrahepatic duct acquired [None]
  - Jaundice cholestatic [None]
  - Liver function test abnormal [None]

NARRATIVE: CASE EVENT DATE: 20140715
